FAERS Safety Report 13360654 (Version 2)
Quarter: 2017Q2

REPORT INFORMATION
  Report Type: Report from Study
  Country: US (occurrence: US)
  Receive Date: 20170322
  Receipt Date: 20170412
  Transmission Date: 20170830
  Serious: Yes (Hospitalization)
  Sender: FDA-Public Use
  Company Number: US-ACTELION-A-US2017-150422

PATIENT
  Age: 11 Month
  Sex: Male

DRUGS (4)
  1. TRACLEER [Suspect]
     Active Substance: BOSENTAN
     Dosage: 10 MG, BID
     Route: 048
     Dates: start: 20161020
  2. TRACLEER [Suspect]
     Active Substance: BOSENTAN
     Indication: PULMONARY HYPERTENSION
     Dosage: 14 MG, BID
     Route: 048
  3. REVATIO [Concomitant]
     Active Substance: SILDENAFIL CITRATE
     Dosage: 9 MG, TID
  4. TRACLEER [Suspect]
     Active Substance: BOSENTAN
     Dosage: 12 MG, BID
     Route: 049

REACTIONS (6)
  - Pulmonary vein stenosis [Recovering/Resolving]
  - Cardiac operation [Recovered/Resolved]
  - Infantile spitting up [Recovering/Resolving]
  - Pulmonary arterial hypertension [Recovering/Resolving]
  - Gastrointestinal disorder [Recovering/Resolving]
  - Oxygen saturation decreased [Recovering/Resolving]

NARRATIVE: CASE EVENT DATE: 20170221
